FAERS Safety Report 5897680-0 (Version None)
Quarter: 2008Q3

REPORT INFORMATION
  Report Type: 
  Country: None (occurrence: None)
  Receive Date: 20080923
  Receipt Date: 20080909
  Transmission Date: 20090109
  Serious: Yes (Death)
  Sender: FDA-Public Use
  Company Number: 2008-03317

PATIENT
  Age: 66 Year
  Sex: Female

DRUGS (8)
  1. VELCADE [Suspect]
     Indication: MANTLE CELL LYMPHOMA
  2. RITUXIMAB(RITUXIMAB) [Suspect]
     Indication: MANTLE CELL LYMPHOMA
  3. CYCLOPHOSPHAMIDE [Suspect]
     Indication: MANTLE CELL LYMPHOMA
  4. EPIRUBICIN [Suspect]
     Indication: MANTLE CELL LYMPHOMA
  5. VINCRISTINE [Suspect]
     Indication: MANTLE CELL LYMPHOMA
  6. PREDNISONE [Suspect]
     Indication: MANTLE CELL LYMPHOMA
  7. FLUDARABINE PHOSPHATE [Suspect]
     Indication: MANTLE CELL LYMPHOMA
  8. MITOXANTRONE [Suspect]
     Indication: MANTLE CELL LYMPHOMA

REACTIONS (3)
  - DISEASE PROGRESSION [None]
  - GENERAL PHYSICAL HEALTH DETERIORATION [None]
  - PNEUMONIA [None]
